FAERS Safety Report 17785606 (Version 8)
Quarter: 2022Q2

REPORT INFORMATION
  Report Type: Spontaneous
  Country: US (occurrence: US)
  Receive Date: 20200514
  Receipt Date: 20220520
  Transmission Date: 20220721
  Serious: Yes (Other)
  Sender: FDA-Public Use
  Company Number: US-GILEAD-2020-0466947

PATIENT
  Age: 43 Year
  Sex: Male
  Weight: 91.626 kg

DRUGS (65)
  1. VIREAD [Suspect]
     Active Substance: TENOFOVIR DISOPROXIL FUMARATE
     Indication: HIV infection
     Dosage: UNK
     Route: 048
     Dates: start: 2002, end: 2002
  2. VIREAD [Suspect]
     Active Substance: TENOFOVIR DISOPROXIL FUMARATE
     Dosage: UNK
     Route: 048
     Dates: start: 20020322, end: 2005
  3. VIREAD [Suspect]
     Active Substance: TENOFOVIR DISOPROXIL FUMARATE
     Dosage: UNK
     Route: 048
     Dates: start: 20020321, end: 200208
  4. TRUVADA [Suspect]
     Active Substance: EMTRICITABINE\TENOFOVIR DISOPROXIL FUMARATE
     Indication: HIV infection
     Dosage: UNK
     Route: 048
     Dates: start: 2006, end: 2012
  5. TRUVADA [Suspect]
     Active Substance: EMTRICITABINE\TENOFOVIR DISOPROXIL FUMARATE
     Dosage: UNK
     Route: 048
     Dates: start: 2005, end: 20120815
  6. TRUVADA [Suspect]
     Active Substance: EMTRICITABINE\TENOFOVIR DISOPROXIL FUMARATE
     Dosage: UNK
     Route: 048
     Dates: start: 20061006, end: 20150815
  7. ATRIPLA [Suspect]
     Active Substance: EFAVIRENZ\EMTRICITABINE\TENOFOVIR DISOPROXIL FUMARATE
     Indication: HIV infection
     Dosage: UNK
     Route: 048
     Dates: start: 2012, end: 2013
  8. ATRIPLA [Suspect]
     Active Substance: EFAVIRENZ\EMTRICITABINE\TENOFOVIR DISOPROXIL FUMARATE
     Dosage: UNK
     Route: 048
     Dates: start: 20120815, end: 20131004
  9. STRIBILD [Suspect]
     Active Substance: COBICISTAT\ELVITEGRAVIR\EMTRICITABINE\TENOFOVIR DISOPROXIL FUMARATE
     Indication: HIV infection
     Dosage: UNK
     Route: 048
     Dates: start: 2013, end: 2016
  10. STRIBILD [Suspect]
     Active Substance: COBICISTAT\ELVITEGRAVIR\EMTRICITABINE\TENOFOVIR DISOPROXIL FUMARATE
     Dosage: UNK
     Route: 048
     Dates: start: 20131004, end: 20160323
  11. BIKTARVY [Concomitant]
     Active Substance: BICTEGRAVIR SODIUM\EMTRICITABINE\TENOFOVIR ALAFENAMIDE FUMARATE
  12. GENVOYA [Concomitant]
     Active Substance: COBICISTAT\ELVITEGRAVIR\EMTRICITABINE\TENOFOVIR ALAFENAMIDE FUMARATE
  13. ERGOCALCIFEROL [Concomitant]
     Active Substance: ERGOCALCIFEROL
  14. ACETAMINOPHEN [Concomitant]
     Active Substance: ACETAMINOPHEN
  15. ACYCLOVIR [Concomitant]
     Active Substance: ACYCLOVIR
  16. AMITRIPTYLINE [Concomitant]
     Active Substance: AMITRIPTYLINE
  17. AMOXICILLIN [Concomitant]
     Active Substance: AMOXICILLIN
  18. METHYLPREDNISOLONE [Concomitant]
     Active Substance: METHYLPREDNISOLONE
  19. OMEPRAZOLE [Concomitant]
     Active Substance: OMEPRAZOLE
  20. PREDNISOLONE [Concomitant]
     Active Substance: PREDNISOLONE
  21. PREDNISONE [Concomitant]
     Active Substance: PREDNISONE
  22. RANITIDINE [Concomitant]
     Active Substance: RANITIDINE
  23. ISENTRESS [Concomitant]
     Active Substance: RALTEGRAVIR POTASSIUM
  24. NORVIR [Concomitant]
     Active Substance: RITONAVIR
  25. REYATAZ [Concomitant]
     Active Substance: ATAZANAVIR SULFATE
  26. PREZISTA [Concomitant]
     Active Substance: DARUNAVIR ETHANOLATE
  27. TRIUMEQ [Concomitant]
     Active Substance: ABACAVIR SULFATE\DOLUTEGRAVIR SODIUM\LAMIVUDINE
  28. ZIAGEN [Concomitant]
     Active Substance: ABACAVIR SULFATE
  29. ATORVASTATIN [Concomitant]
     Active Substance: ATORVASTATIN
  30. BYSTOLIC [Concomitant]
     Active Substance: NEBIVOLOL HYDROCHLORIDE
  31. ATENOLOL [Concomitant]
     Active Substance: ATENOLOL
  32. PROPRANOLOL HYDROCHLORIDE [Concomitant]
     Active Substance: PROPRANOLOL HYDROCHLORIDE
  33. HYDROCHLOROTHIAZIDE [Concomitant]
     Active Substance: HYDROCHLOROTHIAZIDE
  34. TRIAMTERENE [Concomitant]
     Active Substance: TRIAMTERENE
  35. CLONIDINE [Concomitant]
     Active Substance: CLONIDINE
  36. GEMFIBROZIL [Concomitant]
     Active Substance: GEMFIBROZIL
  37. CHOLESTYRAMINE [Concomitant]
     Active Substance: CHOLESTYRAMINE
  38. TESTOSTERONE CYPIONATE [Concomitant]
     Active Substance: TESTOSTERONE CYPIONATE
  39. JANUMET [Concomitant]
     Active Substance: METFORMIN HYDROCHLORIDE\SITAGLIPTIN PHOSPHATE
  40. METFORMIN [Concomitant]
     Active Substance: METFORMIN HYDROCHLORIDE
  41. LANTUS [Concomitant]
     Active Substance: INSULIN GLARGINE
  42. GLIPIZIDE [Concomitant]
     Active Substance: GLIPIZIDE
  43. VICTOZA [Concomitant]
     Active Substance: LIRAGLUTIDE
  44. SEROQUEL [Concomitant]
     Active Substance: QUETIAPINE FUMARATE
  45. INVOKANA [Concomitant]
     Active Substance: CANAGLIFLOZIN
  46. VIDEX [Concomitant]
     Active Substance: DIDANOSINE
  47. LORAZEPAM [Concomitant]
     Active Substance: LORAZEPAM
  48. NEXIUM I.V. [Concomitant]
     Active Substance: ESOMEPRAZOLE SODIUM
  49. CLOTRIMAZOLE [Concomitant]
     Active Substance: CLOTRIMAZOLE
  50. TEMAZEPAM [Concomitant]
     Active Substance: TEMAZEPAM
  51. XOPENEX [Concomitant]
     Active Substance: LEVALBUTEROL HYDROCHLORIDE
  52. LEVOFLOXACIN [Concomitant]
     Active Substance: LEVOFLOXACIN
  53. HYDROCODONE POLISTIREX [Concomitant]
     Active Substance: HYDROCODONE POLISTIREX
  54. NASONEX [Concomitant]
     Active Substance: MOMETASONE FUROATE
  55. FLUCONAZOLE [Concomitant]
     Active Substance: FLUCONAZOLE
  56. DIPHENOXYLATE HYDROCHLORIDE [Concomitant]
     Active Substance: DIPHENOXYLATE HYDROCHLORIDE
  57. ATROPINE SULFATE [Concomitant]
     Active Substance: ATROPINE SULFATE
  58. CEPHALEXIN [Concomitant]
     Active Substance: CEPHALEXIN
  59. DOXYCYCLINE HYCLATE [Concomitant]
     Active Substance: DOXYCYCLINE HYCLATE
  60. CLINDAMYCIN HYDROCHLORIDE [Concomitant]
     Active Substance: CLINDAMYCIN HYDROCHLORIDE
  61. HYDROCODONE BITARTRATE [Concomitant]
     Active Substance: HYDROCODONE BITARTRATE
  62. CODEINE PHOSPHATE [Concomitant]
     Active Substance: CODEINE PHOSPHATE
  63. TERBINAFINE HYDROCHLORIDE [Concomitant]
     Active Substance: TERBINAFINE HYDROCHLORIDE
  64. BETAMETHASONE [Concomitant]
     Active Substance: BETAMETHASONE
  65. CEFUROXIME AXETIL [Concomitant]
     Active Substance: CEFUROXIME AXETIL

REACTIONS (11)
  - Chronic kidney disease [Unknown]
  - Hip arthroplasty [Not Recovered/Not Resolved]
  - Nephrolithiasis [Not Recovered/Not Resolved]
  - Osteonecrosis [Not Recovered/Not Resolved]
  - Renal impairment [Not Recovered/Not Resolved]
  - Bone loss [Unknown]
  - Osteoarthritis [Not Recovered/Not Resolved]
  - Tooth loss [Not Recovered/Not Resolved]
  - Bone density decreased [Unknown]
  - Glomerular filtration rate decreased [Not Recovered/Not Resolved]
  - Blood creatinine increased [Not Recovered/Not Resolved]

NARRATIVE: CASE EVENT DATE: 20140904
